FAERS Safety Report 4596684-8 (Version None)
Quarter: 2005Q1

REPORT INFORMATION
  Report Type: 
  Country: None (occurrence: None)
  Receive Date: 20050228
  Receipt Date: 20050211
  Transmission Date: 20050727
  Serious: Yes (Life-Threatening, Hospitalization)
  Sender: FDA-Public Use
  Company Number: 2005030558

PATIENT
  Sex: Male

DRUGS (5)
  1. BEXTRA [Suspect]
     Indication: ILL-DEFINED DISORDER
     Dosage: 40 MG, ORAL
     Route: 048
  2. CEPHALOSPORINS AND RELATED SUBSTANCES (CEPHALOSPORINS AND RELATED SUBS [Concomitant]
  3. CLAVULIN (AMOXICILLIN TRIHYDRATE, CLAVULANATE POTASSIUM) [Concomitant]
  4. HYDROCORTISONE [Concomitant]
  5. ANTIHISTAMINES (ANTIHISTAMINES) [Concomitant]

REACTIONS (8)
  - FEELING ABNORMAL [None]
  - HAEMODIALYSIS [None]
  - HYPOTENSION [None]
  - RASH PRURITIC [None]
  - STEVENS-JOHNSON SYNDROME [None]
  - SWOLLEN TONGUE [None]
  - TACHYCARDIA [None]
  - URINE OUTPUT DECREASED [None]
